FAERS Safety Report 21849229 (Version 1)
Quarter: 2023Q1

REPORT INFORMATION
  Report Type: Spontaneous
  Country: US (occurrence: None)
  Receive Date: 20230111
  Receipt Date: 20230111
  Transmission Date: 20230417
  Serious: Yes (Hospitalization)
  Sender: FDA-Public Use
  Company Number: None

PATIENT
  Age: 32 Year
  Sex: Male
  Weight: 127.3 kg

DRUGS (4)
  1. DEXAMETHASONE [Suspect]
     Active Substance: DEXAMETHASONE
     Dates: end: 20230106
  2. MERCAPTOPURINE [Suspect]
     Active Substance: MERCAPTOPURINE
     Dates: end: 20230106
  3. METHOTREXATE [Suspect]
     Active Substance: METHOTREXATE
     Dates: end: 20230106
  4. VINCRISTINE SULFATE [Suspect]
     Active Substance: VINCRISTINE SULFATE
     Dates: end: 20221209

REACTIONS (5)
  - Blood bilirubin increased [None]
  - Therapy interrupted [None]
  - Biliary dilatation [None]
  - Ascites [None]
  - Transaminases increased [None]

NARRATIVE: CASE EVENT DATE: 20230106
